FAERS Safety Report 8808947 (Version 1)
Quarter: 2012Q4

REPORT INFORMATION
  Report Type: Spontaneous
  Country: KR (occurrence: None)
  Receive Date: 20120920
  Receipt Date: 20120920
  Transmission Date: 20130627
  Serious: Yes (Death)
  Sender: FDA-Public Use
  Company Number: DSA_59722_2012

PATIENT

DRUGS (3)
  1. FLUOROURACIL (FLUOROURACIL) [Suspect]
  2. LEUCOVORIN [Suspect]
     Route: 042
  3. IRINOTECAN [Suspect]
     Route: 042

REACTIONS (2)
  - Febrile neutropenia [None]
  - Pneumonia [None]
